FAERS Safety Report 10225275 (Version 1)
Quarter: 2014Q1

REPORT INFORMATION
  Report Type: Spontaneous
  Country: US (occurrence: None)
  Receive Date: 20140306
  Receipt Date: 20140306
  Transmission Date: 20141002
  Serious: Yes (Hospitalization)
  Sender: FDA-Public Use
  Company Number: 163-21880-12050605

PATIENT
  Age: 71 Year
  Sex: Male
  Weight: 108.5 kg

DRUGS (18)
  1. REVLIMID (LENALIDOMIDE) (25 MILLIGRAM, CAPSULES) [Suspect]
     Indication: PLASMA CELL MYELOMA
     Dosage: 25 MG, 21 IN 28 D, PO
     Route: 048
     Dates: start: 201212
  2. DEXAMETHASONE (DEXAMETHASONE) [Concomitant]
  3. BACTRIM DS (DACTRIM) [Concomitant]
  4. AMLODIPINE (AMLODIPINE) [Concomitant]
  5. LOVASTATIN (LOVASTATIN) [Concomitant]
  6. ASA (ACETYLSALICYLIC ACID) [Concomitant]
  7. ACYCLOVIR (ACICLOVIR) [Concomitant]
  8. ATENOLOL (ATENOLOL) [Concomitant]
  9. LATANOPROST (LATANOPROST) [Concomitant]
  10. LISINOPRIL HCTZ (ZESTORETIC) [Concomitant]
  11. MULTIVITAMINS (MULTIVITAMINS) [Concomitant]
  12. POTASSIUM CHLORIDE (POTASSIUM CHLORIDE) [Concomitant]
  13. TERAZOSIN (TERAZOSIN) [Concomitant]
  14. TUMS (CALCIUM CARBONATE) [Concomitant]
  15. VITAMIN C (ASCORBIC ACID) [Concomitant]
  16. VITAMIN D3 (COLECALCIFEROL) [Concomitant]
  17. ERGOCALCIFEROL (ERGOCALCIFEROL) [Concomitant]
  18. ASCORBIC ACID (ASCORBIC ACID) [Concomitant]

REACTIONS (2)
  - Pulmonary embolism [None]
  - Pulmonary embolism [None]
